FAERS Safety Report 12569797 (Version 1)
Quarter: 2016Q3

REPORT INFORMATION
  Report Type: Spontaneous
  Country: US (occurrence: None)
  Receive Date: 20160718
  Receipt Date: 20160718
  Transmission Date: 20161109
  Serious: No
  Sender: FDA-Public Use
  Company Number: None

PATIENT
  Age: 39 Year
  Sex: Female
  Weight: 51.26 kg

DRUGS (1)
  1. PARAGARD T 380A [Suspect]
     Active Substance: COPPER
     Dates: end: 20160617

REACTIONS (5)
  - Haemorrhage [None]
  - Device dislocation [None]
  - Device breakage [None]
  - Complication of device removal [None]
  - Pain [None]

NARRATIVE: CASE EVENT DATE: 20160617
